FAERS Safety Report 9821551 (Version 2)
Quarter: 2014Q1

REPORT INFORMATION
  Report Type: Spontaneous
  Country: US (occurrence: US)
  Receive Date: 20140116
  Receipt Date: 20140214
  Transmission Date: 20141002
  Serious: No
  Sender: FDA-Public Use
  Company Number: US-PFIZER INC-2014010618

PATIENT
  Age: 56 Year
  Sex: Female

DRUGS (8)
  1. XELJANZ [Suspect]
     Indication: RHEUMATOID ARTHRITIS
     Dosage: 5 MG, TWICE A DAY
     Route: 048
     Dates: start: 20130619
  2. LEVOTHYROXINE [Concomitant]
     Dosage: UNK
  3. LIPITOR [Concomitant]
     Dosage: UNK
  4. FOLIC ACID [Concomitant]
     Dosage: UNK
  5. ZANTAC [Concomitant]
     Dosage: UNK
  6. LEFLUNOMIDE [Concomitant]
     Dosage: UNK
  7. HCTZ [Concomitant]
     Dosage: UNK
  8. BIOTIN [Concomitant]
     Dosage: UNK

REACTIONS (2)
  - Hepatic enzyme increased [Not Recovered/Not Resolved]
  - Pain in extremity [Not Recovered/Not Resolved]
